FAERS Safety Report 9168654 (Version 2)
Quarter: 2013Q2

REPORT INFORMATION
  Report Type: Spontaneous
  Country: RU (occurrence: RU)
  Receive Date: 20130318
  Receipt Date: 20130410
  Transmission Date: 20140414
  Serious: Yes (Death, Life-Threatening)
  Sender: FDA-Public Use
  Company Number: RU-ASTRAZENECA-2013SE16794

PATIENT
  Age: 73 Year
  Sex: Male
  Weight: 120 kg

DRUGS (3)
  1. MARCAINE [Suspect]
     Indication: SPINAL ANAESTHESIA
     Route: 008
     Dates: start: 20130123
  2. PHENAZEPAM [Concomitant]
     Indication: EMOTIONAL DISTRESS
     Route: 048
     Dates: start: 20130122, end: 20130122
  3. PHENAZEPAM [Concomitant]
     Indication: EMOTIONAL DISTRESS
     Route: 042
     Dates: start: 20130123, end: 20130123

REACTIONS (5)
  - Bradycardia [Fatal]
  - Hypotension [Fatal]
  - Confusional state [Fatal]
  - Respiratory depression [Fatal]
  - Incorrect route of drug administration [Unknown]
